FAERS Safety Report 7487199 (Version 4)
Quarter: 2016Q4

REPORT INFORMATION
  Report Type: Report from Study
  Country: US (occurrence: US)
  Receive Date: 20100719
  Receipt Date: 20161123
  Transmission Date: 20170207
  Serious: Yes (Other)
  Sender: FDA-Public Use
  Company Number: US-JNJFOC-20100702744

PATIENT
  Age: 52 Year
  Sex: Female
  Weight: 82.56 kg

DRUGS (13)
  1. REMICADE [Suspect]
     Active Substance: INFLIXIMAB
     Indication: RHEUMATOID ARTHRITIS
     Dosage: DOSE INCREASED ON UNKNOWN DATE AROUND APR-2010
     Route: 042
     Dates: start: 20100209
  2. FISH OIL [Concomitant]
     Active Substance: FISH OIL
     Indication: NUTRITIONAL SUPPLEMENTATION
  3. REMICADE [Suspect]
     Active Substance: INFLIXIMAB
     Indication: RHEUMATOID ARTHRITIS
     Route: 042
     Dates: start: 20090826
  4. CALCIUM [Concomitant]
     Active Substance: CALCIUM
     Indication: NUTRITIONAL SUPPLEMENTATION
  5. PREDNISONE. [Concomitant]
     Active Substance: PREDNISONE
     Indication: RHEUMATOID ARTHRITIS
  6. CLARITIN [Concomitant]
     Active Substance: LORATADINE
     Indication: PREMEDICATION
     Route: 048
     Dates: start: 20100406
  7. REMICADE [Suspect]
     Active Substance: INFLIXIMAB
     Indication: RHEUMATOID ARTHRITIS
     Route: 042
     Dates: end: 20100607
  8. REMICADE [Suspect]
     Active Substance: INFLIXIMAB
     Indication: RHEUMATOID ARTHRITIS
     Route: 042
     Dates: start: 2010
  9. REMICADE [Suspect]
     Active Substance: INFLIXIMAB
     Indication: RHEUMATOID ARTHRITIS
     Route: 042
     Dates: start: 20100406
  10. REMICADE [Suspect]
     Active Substance: INFLIXIMAB
     Indication: RHEUMATOID ARTHRITIS
     Route: 042
     Dates: start: 20091019
  11. PIROXICAM. [Concomitant]
     Active Substance: PIROXICAM
     Indication: PAIN
  12. VITAMIN D [Concomitant]
     Active Substance: CHOLECALCIFEROL
     Indication: NUTRITIONAL SUPPLEMENTATION
  13. ACETAMINOPHEN. [Concomitant]
     Active Substance: ACETAMINOPHEN
     Indication: PREMEDICATION
     Dates: start: 20100406

REACTIONS (27)
  - Blood immunoglobulin M decreased [Unknown]
  - Blood disorder [Not Recovered/Not Resolved]
  - Dizziness [Unknown]
  - Abdominal distension [Not Recovered/Not Resolved]
  - Vision blurred [Not Recovered/Not Resolved]
  - Body temperature increased [Recovering/Resolving]
  - Rheumatoid arthritis [Recovering/Resolving]
  - Pruritus [Unknown]
  - Arthralgia [Unknown]
  - Apnoea [Unknown]
  - Feeling cold [Not Recovered/Not Resolved]
  - Epistaxis [Unknown]
  - Hot flush [Not Recovered/Not Resolved]
  - Fatigue [Not Recovered/Not Resolved]
  - Renal pain [Not Recovered/Not Resolved]
  - Trigger finger [Not Recovered/Not Resolved]
  - Blood pressure increased [Recovered/Resolved]
  - Asthenia [Not Recovered/Not Resolved]
  - Nausea [Not Recovered/Not Resolved]
  - Cough [Not Recovered/Not Resolved]
  - Swelling [Unknown]
  - Dyspnoea [Unknown]
  - Abdominal pain upper [Not Recovered/Not Resolved]
  - Herpes virus infection [Unknown]
  - Chest discomfort [Unknown]
  - Headache [Not Recovered/Not Resolved]
  - Insomnia [Not Recovered/Not Resolved]

NARRATIVE: CASE EVENT DATE: 200909
